FAERS Safety Report 13396421 (Version 1)
Quarter: 2017Q2

REPORT INFORMATION
  Report Type: Spontaneous
  Country: US (occurrence: US)
  Receive Date: 20170403
  Receipt Date: 20170403
  Transmission Date: 20170830
  Serious: No
  Sender: FDA-Public Use
  Company Number: US-JNJFOC-20170223838

PATIENT
  Age: 41 Year
  Sex: Male
  Weight: 119.75 kg

DRUGS (2)
  1. INVOKANA [Suspect]
     Active Substance: CANAGLIFLOZIN
     Indication: PRODUCT USED FOR UNKNOWN INDICATION
     Dosage: DOSE: 300 UNITS NOT SPECIFIED
     Route: 065
  2. INVOKANA [Suspect]
     Active Substance: CANAGLIFLOZIN
     Indication: PRODUCT USED FOR UNKNOWN INDICATION
     Dosage: DOSE: 100 (UNITS NOT SPECIFIED)
     Route: 065

REACTIONS (2)
  - Treatment noncompliance [Unknown]
  - Creatinine renal clearance decreased [Recovering/Resolving]
